FAERS Safety Report 6756089-8 (Version None)
Quarter: 2010Q2

REPORT INFORMATION
  Report Type: 
  Country: None (occurrence: None)
  Receive Date: 20100604
  Receipt Date: 20100526
  Transmission Date: 20101027
  Serious: Yes (Other)
  Sender: FDA-Public Use
  Company Number: US-PFIZER INC-2010051776

PATIENT

DRUGS (4)
  1. LIPITOR [Suspect]
     Dosage: 80 MG, 1X/DAY HS
     Dates: start: 20100320
  2. LIPITOR [Suspect]
     Dosage: 20 MG DAILY
     Dates: end: 20100320
  3. DIOVAN HCT [Concomitant]
     Indication: HYPERTENSION
     Dosage: 160 MG/ 12.5 MG
  4. LYRICA [Concomitant]
     Indication: POST HERPETIC NEURALGIA
     Dosage: 75 MG, 1X/DAY

REACTIONS (6)
  - HEPATIC ENZYME INCREASED [None]
  - MYALGIA [None]
  - MYOGLOBIN BLOOD INCREASED [None]
  - PROTEINURIA [None]
  - PYREXIA [None]
  - RHABDOMYOLYSIS [None]
